FAERS Safety Report 18198380 (Version 1)
Quarter: 2020Q3

REPORT INFORMATION
  Report Type: Spontaneous
  Country: US (occurrence: US)
  Receive Date: 20200826
  Receipt Date: 20200826
  Transmission Date: 20201103
  Serious: Yes (Life-Threatening, Hospitalization)
  Sender: FDA-Public Use
  Company Number: None

PATIENT
  Age: 48 Year
  Sex: Male
  Weight: 90 kg

DRUGS (1)
  1. LOSARTAN 50MG TABLETS [Suspect]
     Active Substance: LOSARTAN
     Indication: HYPERTENSION
     Dates: start: 20190215, end: 20200228

REACTIONS (2)
  - Suspected product quality issue [None]
  - Colon cancer stage IV [None]

NARRATIVE: CASE EVENT DATE: 20200101
